FAERS Safety Report 9966978 (Version 1)
Quarter: 2014Q1

REPORT INFORMATION
  Report Type: Spontaneous
  Country: US (occurrence: US)
  Receive Date: 20140305
  Receipt Date: 20140305
  Transmission Date: 20141002
  Serious: Yes (Hospitalization)
  Sender: FDA-Public Use
  Company Number: ALCN2014US001327

PATIENT
  Age: 70 Year
  Sex: Female

DRUGS (1)
  1. SIMBRINZA [Suspect]
     Indication: INTRAOCULAR PRESSURE INCREASED
     Dosage: 1 GTT, BID
     Route: 047
     Dates: start: 20140122, end: 20140124

REACTIONS (5)
  - Colitis ischaemic [Recovered/Resolved]
  - Ileus [Recovered/Resolved]
  - Rectal haemorrhage [Recovered/Resolved]
  - Disorientation [Recovered/Resolved]
  - Dizziness [Recovered/Resolved]
